FAERS Safety Report 11799786 (Version 1)
Quarter: 2015Q4

REPORT INFORMATION
  Report Type: Spontaneous
  Country: GB (occurrence: GB)
  Receive Date: 20151203
  Receipt Date: 20151203
  Transmission Date: 20160305
  Serious: Yes (Death)
  Sender: FDA-Public Use
  Company Number: GB-TEVA-611815ACC

PATIENT
  Age: 39 Year
  Sex: Male

DRUGS (5)
  1. PREDNISOLONE. [Suspect]
     Active Substance: PREDNISOLONE
  2. DEXIMUNE [Suspect]
     Active Substance: CYCLOSPORINE
  3. DEXIMUNE [Suspect]
     Active Substance: CYCLOSPORINE
  4. DEXIMUNE [Suspect]
     Active Substance: CYCLOSPORINE
  5. ACCORD HEALTHCARE MYCOPHENOLATE MOFETIL [Suspect]
     Active Substance: MYCOPHENOLATE MOFETIL

REACTIONS (1)
  - Death [Fatal]
